FAERS Safety Report 9554595 (Version 1)
Quarter: 2013Q3

REPORT INFORMATION
  Report Type: Spontaneous
  Country: FR (occurrence: FR)
  Receive Date: 20130925
  Receipt Date: 20130925
  Transmission Date: 20140515
  Serious: Yes (Hospitalization)
  Sender: FDA-Public Use
  Company Number: FR-BAXTER-2013BAX036593

PATIENT
  Age: 30 Year
  Sex: Female

DRUGS (10)
  1. ENDOXAN 2000 MG, LYOPHILISAT POUR SOLUTION INJECTABLE [Suspect]
     Indication: B-CELL LYMPHOMA
     Route: 042
     Dates: start: 20130207, end: 20130207
  2. ENDOXAN 2000 MG, LYOPHILISAT POUR SOLUTION INJECTABLE [Suspect]
     Route: 042
     Dates: start: 20130425, end: 20130425
  3. UROMITEXAN 5 G/50 ML, SOLUTION INJECTABLE POUR PERFUSION EN FLACON [Suspect]
     Indication: PRODUCT USED FOR UNKNOWN INDICATION
     Route: 042
     Dates: start: 20130207, end: 20130207
  4. UROMITEXAN 5 G/50 ML, SOLUTION INJECTABLE POUR PERFUSION EN FLACON [Suspect]
     Route: 042
     Dates: start: 20130425, end: 20130425
  5. MABTHERA [Suspect]
     Indication: B-CELL LYMPHOMA
     Route: 042
     Dates: start: 20130207, end: 20130207
  6. MABTHERA [Suspect]
     Route: 042
     Dates: start: 20130425, end: 20130425
  7. DOXORUBICINE [Suspect]
     Indication: B-CELL LYMPHOMA
     Route: 042
     Dates: start: 20130207, end: 20130207
  8. DOXORUBICINE [Suspect]
     Route: 042
     Dates: start: 20130425, end: 20130425
  9. VINCRISTINE TEVA [Suspect]
     Indication: B-CELL LYMPHOMA
     Route: 042
     Dates: start: 20130207, end: 20130207
  10. VINCRISTINE TEVA [Suspect]
     Route: 042
     Dates: start: 20130425, end: 20130425

REACTIONS (1)
  - Agranulocytosis [Recovered/Resolved]
